FAERS Safety Report 13037001 (Version 1)
Quarter: 2016Q4

REPORT INFORMATION
  Report Type: Spontaneous
  Country: US (occurrence: US)
  Receive Date: 20161216
  Receipt Date: 20161216
  Transmission Date: 20170207
  Serious: No
  Sender: FDA-Public Use
  Company Number: US-PFIZER INC-2016584649

PATIENT
  Sex: Female

DRUGS (3)
  1. CYMBALTA [Suspect]
     Active Substance: DULOXETINE HYDROCHLORIDE
  2. VISTARIL [Suspect]
     Active Substance: HYDROXYZINE PAMOATE
  3. ZYPREXA [Suspect]
     Active Substance: OLANZAPINE
     Dosage: UNK

REACTIONS (2)
  - Drug ineffective [Unknown]
  - Peripheral swelling [Unknown]
